FAERS Safety Report 6160457-5 (Version None)
Quarter: 2009Q2

REPORT INFORMATION
  Report Type: 
  Country: None (occurrence: None)
  Receive Date: 20090415
  Receipt Date: 20090415
  Transmission Date: 20091009
  Serious: Yes (Other)
  Sender: FDA-Public Use
  Company Number: None

PATIENT
  Sex: Female
  Weight: 91.173 kg

DRUGS (4)
  1. ACIPHEX [Suspect]
     Indication: GASTROOESOPHAGEAL REFLUX DISEASE
     Dosage: 20 MG TWICE DAILY ORAL 1 X DAILY; 2 X DAILY
     Route: 048
     Dates: start: 20000101
  2. ACIPHEX [Suspect]
     Indication: HIATUS HERNIA
     Dosage: 20 MG TWICE DAILY ORAL 1 X DAILY; 2 X DAILY
     Route: 048
     Dates: start: 20000101
  3. ACIPHEX [Suspect]
     Indication: GASTROOESOPHAGEAL REFLUX DISEASE
     Dosage: 20 MG TWICE DAILY ORAL 1 X DAILY; 2 X DAILY
     Route: 048
     Dates: start: 20060101
  4. ACIPHEX [Suspect]
     Indication: HIATUS HERNIA
     Dosage: 20 MG TWICE DAILY ORAL 1 X DAILY; 2 X DAILY
     Route: 048
     Dates: start: 20060101

REACTIONS (16)
  - ABDOMINAL PAIN [None]
  - BONE PAIN [None]
  - COLITIS ULCERATIVE [None]
  - DEHYDRATION [None]
  - DIARRHOEA [None]
  - FAECAL INCONTINENCE [None]
  - HYPOAESTHESIA [None]
  - MUSCULOSKELETAL PAIN [None]
  - MUSCULOSKELETAL STIFFNESS [None]
  - NAIL DISORDER [None]
  - PAIN [None]
  - PARAESTHESIA [None]
  - PERIPHERAL COLDNESS [None]
  - PYREXIA [None]
  - VITAMIN B12 DEFICIENCY [None]
  - VOMITING [None]
